FAERS Safety Report 4432940-1 (Version None)
Quarter: 2004Q3

REPORT INFORMATION
  Report Type: 
  Country: None (occurrence: None)
  Receive Date: 20040823
  Receipt Date: 20040810
  Transmission Date: 20050211
  Serious: Yes (Other)
  Sender: FDA-Public Use
  Company Number: 2004227703AU

PATIENT
  Age: 57 Year
  Sex: Female
  Weight: 57 kg

DRUGS (7)
  1. MACRODANTIN [Suspect]
     Indication: URINARY TRACT DISORDER
     Dosage: 100 MG, DAILY
     Dates: start: 19970101
  2. IPRAVENT INHALATION SOLUTION(IPRATROPIUM BROMIDE) SOLUTION, STERILE [Suspect]
  3. SALBUTAMOL (SALBUTAMOL SULPHATE) SYRUP [Suspect]
  4. DELTA-CORTEF [Suspect]
  5. TROMBYL (ACETYLSALICYLIC ACID, ACETYLSALICYLIC ACID) TABLET [Suspect]
     Dosage: 150 MG, DAILY
  6. BECLOFORTE ^ALLEN + HANDBURYS LTD^ (BECLOMETASONE DIPROPIONATE) [Suspect]
     Dosage: 4 DOSE,  DAILY
  7. TRISEQUENS (NORETHISTERONE ACETATE [Suspect]
     Dosage: 1 DOSE, DAILY

REACTIONS (1)
  - PULMONARY FIBROSIS [None]
